FAERS Safety Report 9302515 (Version 2)
Quarter: 2013Q2

REPORT INFORMATION
  Report Type: Spontaneous
  Country: US (occurrence: US)
  Receive Date: 20130522
  Receipt Date: 20130619
  Transmission Date: 20140414
  Serious: No
  Sender: FDA-Public Use
  Company Number: US-BIOGENIDEC-2013BI045729

PATIENT
  Sex: Female

DRUGS (4)
  1. TYSABRI [Suspect]
     Indication: MULTIPLE SCLEROSIS
     Route: 042
     Dates: start: 20081113, end: 20100625
  2. TYSABRI [Suspect]
     Indication: MULTIPLE SCLEROSIS
     Route: 042
     Dates: start: 20110304, end: 201305
  3. AVONEX [Concomitant]
     Indication: MULTIPLE SCLEROSIS
     Route: 030
     Dates: start: 20080201, end: 2008
  4. EPIDURAL [Concomitant]
     Indication: PAIN
     Dates: start: 201002

REACTIONS (6)
  - Pain of skin [Recovered/Resolved]
  - Muscle spasticity [Recovered/Resolved]
  - Tremor [Recovered/Resolved]
  - Sensation of heaviness [Not Recovered/Not Resolved]
  - Optic neuritis [Recovered/Resolved]
  - Stress [Recovered/Resolved]
